FAERS Safety Report 25760268 (Version 1)
Quarter: 2025Q3

REPORT INFORMATION
  Report Type: Spontaneous
  Country: US (occurrence: US)
  Receive Date: 20250904
  Receipt Date: 20250904
  Transmission Date: 20251021
  Serious: Yes (Other)
  Sender: HIKMA
  Company Number: US-HIKMA PHARMACEUTICALS USA INC.-US-H14001-25-09844

PATIENT

DRUGS (3)
  1. FLUTICASONE PROPIONATE [Suspect]
     Active Substance: FLUTICASONE PROPIONATE
     Indication: Cough
     Dosage: 1 SPRAY IN EACH NOSTRIL
     Route: 045
     Dates: start: 202506
  2. FLONASE [Concomitant]
     Active Substance: FLUTICASONE PROPIONATE
     Indication: Asthma
     Route: 065
  3. INSULIN HUMAN [Concomitant]
     Active Substance: INSULIN HUMAN
     Indication: Diabetes mellitus
     Route: 065

REACTIONS (7)
  - Nose deformity [Not Recovered/Not Resolved]
  - Nasal congestion [Not Recovered/Not Resolved]
  - Palpitations [Not Recovered/Not Resolved]
  - Hypotension [Not Recovered/Not Resolved]
  - Hypertension [Not Recovered/Not Resolved]
  - Vein disorder [Not Recovered/Not Resolved]
  - Anosmia [Not Recovered/Not Resolved]
